FAERS Safety Report 4335113-6 (Version None)
Quarter: 2004Q1

REPORT INFORMATION
  Report Type: 
  Country: None (occurrence: None)
  Receive Date: 20040329
  Receipt Date: 20040121
  Transmission Date: 20041129
  Serious: No
  Sender: FDA-Public Use
  Company Number: 04P-163-0248774-00

PATIENT
  Age: 69 Year
  Sex: Female

DRUGS (9)
  1. HUMIRA [Suspect]
     Indication: RHEUMATOID ARTHRITIS
     Dosage: 40 MG, 1 IN 2 WK, SUBCUTANEOUS
     Route: 058
     Dates: start: 20031101
  2. METFORMIN HYDROCHLORIDE [Concomitant]
  3. ALENDRONATE SODIUM [Concomitant]
  4. CYCLOBENZAPRINE HYDROCHLORIDE [Concomitant]
  5. CEVIMELINE HYDROCHLORIDE [Concomitant]
  6. URSODEOXYCHOLIC ACID [Concomitant]
  7. NADOLOL [Concomitant]
  8. PROPACET 100 [Concomitant]
  9. FUROSEMIDE [Concomitant]

REACTIONS (2)
  - INJECTION SITE BURNING [None]
  - INJECTION SITE PAIN [None]
